FAERS Safety Report 10129567 (Version 3)
Quarter: 2014Q4

REPORT INFORMATION
  Report Type: Spontaneous
  Country: CA (occurrence: None)
  Receive Date: 20140424
  Receipt Date: 20141202
  Transmission Date: 20150528
  Serious: Yes (Death, Other)
  Sender: FDA-Public Use
  Company Number: CA-015379

PATIENT
  Age: 72 Year
  Sex: Male

DRUGS (4)
  1. BICALUTAMIDE. [Concomitant]
     Active Substance: BICALUTAMIDE
  2. PREDNISONE. [Concomitant]
     Active Substance: PREDNISONE
  3. FIRMAGON [Suspect]
     Active Substance: DEGARELIX ACETATE
     Indication: PROSTATE CANCER
     Dosage: 1X/MONTH SUBCUTANEOUS
     Route: 058
     Dates: start: 20130328, end: 20140711
  4. DILAUDID [Concomitant]
     Active Substance: HYDROMORPHONE HYDROCHLORIDE

REACTIONS (5)
  - General physical health deterioration [None]
  - Asthenia [None]
  - Pain [None]
  - Condition aggravated [None]
  - Therapy cessation [None]
